FAERS Safety Report 19477540 (Version 4)
Quarter: 2022Q1

REPORT INFORMATION
  Report Type: Spontaneous
  Country: JP (occurrence: JP)
  Receive Date: 20210630
  Receipt Date: 20220330
  Transmission Date: 20220423
  Serious: Yes (Hospitalization)
  Sender: FDA-Public Use
  Company Number: JP-EISAI-202103133_LEN-HCC_P_1

PATIENT
  Age: 81 Year
  Sex: Male
  Weight: 51 kg

DRUGS (3)
  1. LENVATINIB [Suspect]
     Active Substance: LENVATINIB
     Indication: Hepatocellular carcinoma
     Route: 048
     Dates: start: 20200609, end: 20200612
  2. LENVATINIB [Suspect]
     Active Substance: LENVATINIB
     Dosage: DOSAGE AND FREQUENCY UNKNOWN
     Route: 048
     Dates: start: 20200726
  3. APIXABAN [Concomitant]
     Active Substance: APIXABAN
     Indication: Anticoagulant therapy
     Dosage: DOSE AND FREQUENCY UNKNOWN
     Route: 065

REACTIONS (1)
  - Liver carcinoma ruptured [Recovering/Resolving]

NARRATIVE: CASE EVENT DATE: 20200612
